FAERS Safety Report 22973242 (Version 2)
Quarter: 2023Q4

REPORT INFORMATION
  Report Type: Report from Study
  Country: US (occurrence: US)
  Receive Date: 20230922
  Receipt Date: 20231017
  Transmission Date: 20240110
  Serious: Yes (Other)
  Sender: FDA-Public Use
  Company Number: US-IDORSIA-007002-2023-US

PATIENT
  Sex: Female

DRUGS (2)
  1. QUVIVIQ [Suspect]
     Active Substance: DARIDOREXANT
     Indication: Product used for unknown indication
     Dosage: 25 MG, QD
     Route: 048
  2. QUVIVIQ [Suspect]
     Active Substance: DARIDOREXANT
     Dosage: UNK
     Route: 048

REACTIONS (6)
  - Self-injurious ideation [Unknown]
  - Conversion disorder [Unknown]
  - Product availability issue [Unknown]
  - Insomnia [Unknown]
  - Somnolence [Unknown]
  - Therapeutic product effect incomplete [Unknown]
